FAERS Safety Report 8246076-5 (Version None)
Quarter: 2012Q1

REPORT INFORMATION
  Report Type: 
  Country: None (occurrence: None)
  Receive Date: 20120330
  Receipt Date: 20120322
  Transmission Date: 20120608
  Serious: Yes (Hospitalization, Disabling, Other)
  Sender: FDA-Public Use
  Company Number: PHHY2011AU60654

PATIENT
  Sex: Male

DRUGS (1)
  1. CLOZARIL [Suspect]
     Indication: SCHIZOPHRENIA
     Dosage: 300 MG,
     Dates: start: 20100331

REACTIONS (11)
  - PALPITATIONS [None]
  - HYPOTENSION [None]
  - COUGH [None]
  - BLOOD PRESSURE FLUCTUATION [None]
  - INSOMNIA [None]
  - SCREAMING [None]
  - NAUSEA [None]
  - DYSPNOEA [None]
  - VOMITING [None]
  - DIZZINESS [None]
  - ANTIPSYCHOTIC DRUG LEVEL BELOW THERAPEUTIC [None]
